FAERS Safety Report 8027365-6 (Version None)
Quarter: 2012Q1

REPORT INFORMATION
  Report Type: 
  Country: None (occurrence: None)
  Receive Date: 20120106
  Receipt Date: 20120104
  Transmission Date: 20120608
  Serious: Yes (Death)
  Sender: FDA-Public Use
  Company Number: US-ASTELLAS-2012US000055

PATIENT
  Sex: Male

DRUGS (2)
  1. ERLOTINIB HYDROCHLORIDE [Suspect]
     Indication: METASTATIC NEOPLASM
     Dosage: UNK
     Route: 048
     Dates: start: 20090901
  2. ERLOTINIB HYDROCHLORIDE [Suspect]
     Dosage: 25 MG, 1 TAB DAILY FOR 7 DAYS THEN 2 TABS DAILY FOR 7 DAYS
     Route: 048
     Dates: start: 20110317

REACTIONS (1)
  - DEATH [None]
